FAERS Safety Report 12737466 (Version 2)
Quarter: 2016Q3

REPORT INFORMATION
  Report Type: Spontaneous
  Country: NL (occurrence: NL)
  Receive Date: 20160913
  Receipt Date: 20160921
  Transmission Date: 20161109
  Serious: Yes (Life-Threatening, Hospitalization)
  Sender: FDA-Public Use
  Company Number: NL-TEVA-690264ACC

PATIENT
  Age: 48 Year
  Sex: Female
  Weight: 67 kg

DRUGS (7)
  1. DOXORUBICIN INJECTIE/INFUUS [Suspect]
     Active Substance: DOXORUBICIN
     Indication: INVASIVE DUCTAL BREAST CARCINOMA
     Route: 042
     Dates: start: 201602, end: 201605
  2. DEXAMETHASON TABLET  4MG [Concomitant]
     Dosage: 8 MILLIGRAM DAILY; 1DD2 OP DAG2 EN 3 VAN DE KUUR
     Route: 048
  3. PACLITAXEL INFUSION [Suspect]
     Active Substance: PACLITAXEL
     Indication: INVASIVE DUCTAL BREAST CARCINOMA
     Route: 042
     Dates: start: 201602, end: 201605
  4. METOCLOPRAMIDE TABLET 10MG [Concomitant]
     Active Substance: METOCLOPRAMIDE
     Dosage: ZONODIG 1-3 DD1
     Route: 048
  5. APREPITANT CAPSULE 125+80MG (COMBIVERPAKKING) [Concomitant]
     Dosage: 1 DOSAGE FORMS DAILY; 1DD1
     Route: 048
  6. CYCLOPHOSPHAMIDE INJECTIE/INFUUS [Suspect]
     Active Substance: CYCLOPHOSPHAMIDE
     Indication: INVASIVE DUCTAL BREAST CARCINOMA
     Route: 042
     Dates: start: 201602, end: 201605
  7. OMEPRAZOL CAPSULE MSR 20MG [Concomitant]
     Active Substance: OMEPRAZOLE
     Dosage: 20 MILLIGRAM DAILY; 1DD1
     Route: 048

REACTIONS (1)
  - Hepatic function abnormal [Recovering/Resolving]

NARRATIVE: CASE EVENT DATE: 20160405
